FAERS Safety Report 7152979-5 (Version None)
Quarter: 2010Q4

REPORT INFORMATION
  Report Type: 
  Country: None (occurrence: None)
  Receive Date: 20101130
  Receipt Date: 20101119
  Transmission Date: 20110411
  Serious: Yes (Hospitalization, Other)
  Sender: FDA-Public Use
  Company Number: 20108516

PATIENT
  Sex: Male

DRUGS (1)
  1. LIORESAL [Suspect]
     Indication: MUSCLE SPASTICITY
     Dosage: 155.4 MCG, DAILY, INTRATHECAL
     Route: 037

REACTIONS (9)
  - CHEST PAIN [None]
  - DEVICE BREAKAGE [None]
  - DEVICE MALFUNCTION [None]
  - DYSPNOEA [None]
  - HAEMORRHAGE [None]
  - IMPAIRED HEALING [None]
  - MUSCLE TIGHTNESS [None]
  - PYREXIA [None]
  - WOUND DEHISCENCE [None]
